FAERS Safety Report 19175584 (Version 1)
Quarter: 2021Q2

REPORT INFORMATION
  Report Type: Spontaneous
  Country: GB (occurrence: GB)
  Receive Date: 20210423
  Receipt Date: 20210423
  Transmission Date: 20210717
  Serious: Yes (Other)
  Sender: FDA-Public Use
  Company Number: GB-PFIZER INC-2021416428

PATIENT
  Age: 55 Year
  Sex: Male

DRUGS (9)
  1. UPERIO [Suspect]
     Active Substance: SACUBITRIL\VALSARTAN
     Indication: CARDIAC DISORDER
     Dosage: 50 MG, QD
  2. TAMSULOSIN [Suspect]
     Active Substance: TAMSULOSIN
     Indication: CARDIAC DISORDER
     Dosage: 400 UG
     Route: 065
  3. METOLAZONE. [Suspect]
     Active Substance: METOLAZONE
     Indication: CARDIAC DISORDER
     Dosage: 5 MG
     Route: 065
  4. SILDENAFIL CITRATE. [Suspect]
     Active Substance: SILDENAFIL CITRATE
     Indication: CARDIAC DISORDER
     Dosage: 25 MG
     Route: 065
  5. ASPIRIN [ACETYLSALICYLIC ACID] [Suspect]
     Active Substance: ASPIRIN
     Indication: CARDIAC DISORDER
     Dosage: 75 MG
     Route: 065
  6. WARFARIN [Suspect]
     Active Substance: WARFARIN
     Indication: CARDIAC DISORDER
     Dosage: 2.5 MG
     Route: 065
  7. BISOPROLOL FUMARATE. [Suspect]
     Active Substance: BISOPROLOL FUMARATE
     Indication: CARDIAC DISORDER
     Dosage: 2.5 MG
     Route: 065
  8. FUROSEMIDE. [Suspect]
     Active Substance: FUROSEMIDE
     Indication: CARDIAC DISORDER
     Dosage: 40 MG
     Route: 065
  9. LYRICA [Suspect]
     Active Substance: PREGABALIN
     Indication: CARDIAC DISORDER
     Dosage: 75 MG
     Route: 065

REACTIONS (3)
  - Condition aggravated [Unknown]
  - Cerebrovascular accident [Unknown]
  - Off label use [Unknown]
